FAERS Safety Report 6878669-1 (Version None)
Quarter: 2010Q3

REPORT INFORMATION
  Report Type: 
  Country: None (occurrence: None)
  Receive Date: 20100728
  Receipt Date: 20100722
  Transmission Date: 20110219
  Serious: Yes (Other)
  Sender: FDA-Public Use
  Company Number: B0505671A

PATIENT
  Age: 31 Year
  Sex: Female
  Weight: 60.5 kg

DRUGS (7)
  1. LAMIVUDINE [Suspect]
     Indication: RETROVIRAL INFECTION
     Dosage: 300MG PER DAY
     Route: 048
  2. VALGANCICLOVIR HCL [Suspect]
     Indication: CYTOMEGALOVIRUS INFECTION
     Route: 065
     Dates: start: 20040615
  3. DIDANOSINE [Suspect]
     Indication: RETROVIRAL INFECTION
     Dosage: 250MG PER DAY
     Route: 048
     Dates: start: 20040901
  4. REYATAZ [Suspect]
     Indication: RETROVIRAL INFECTION
     Dosage: 300MG PER DAY
     Route: 048
  5. NORVIR [Suspect]
     Indication: RETROVIRAL INFECTION
     Dosage: 100MG PER DAY
     Route: 048
  6. FUZEON [Suspect]
     Indication: RETROVIRAL INFECTION
     Dosage: 180MG PER DAY
     Route: 058
  7. COTRIM [Concomitant]
     Dates: start: 20040612

REACTIONS (3)
  - ABORTION SPONTANEOUS [None]
  - PLACENTAL INFARCTION [None]
  - UMBILICAL CORD ABNORMALITY [None]
